FAERS Safety Report 24572426 (Version 1)
Quarter: 2024Q4

REPORT INFORMATION
  Report Type: Spontaneous
  Country: US (occurrence: None)
  Receive Date: 20241101
  Receipt Date: 20241101
  Transmission Date: 20250114
  Serious: Yes (Other)
  Sender: Public
  Company Number: None

PATIENT
  Age: 81 Year
  Sex: Female
  Weight: 106.5 kg

DRUGS (1)
  1. DOCETAXEL [Suspect]
     Active Substance: DOCETAXEL
     Indication: Breast cancer
     Dosage: OTHER FREQUENCY : EVERY 3 WEEKS;?
     Dates: start: 20241031

REACTIONS (8)
  - Muscle spasms [None]
  - Dyspnoea [None]
  - Flushing [None]
  - Cold sweat [None]
  - Blood pressure increased [None]
  - Oxygen saturation decreased [None]
  - Confusional state [None]
  - Infusion related reaction [None]

NARRATIVE: CASE EVENT DATE: 20241031
